FAERS Safety Report 8852214 (Version 2)
Quarter: 2013Q2

REPORT INFORMATION
  Report Type: Spontaneous
  Country: US (occurrence: None)
  Receive Date: 20120426
  Receipt Date: 20120703
  Transmission Date: 20140414
  Serious: No
  Sender: FDA-Public Use
  Company Number: PHEH2011US011210

PATIENT
  Age: 44 Year
  Sex: Female
  Weight: 78 kg

DRUGS (27)
  1. GILENYA [Suspect]
     Indication: MULTIPLE SCLEROSIS
     Route: 048
     Dates: start: 20111122
  2. XANAX (ALPRAZOLAM) [Concomitant]
  3. ACETAMINOPHEN (PARACETAMOL) CAPSULE [Concomitant]
  4. PROAIR HFA (SALBUTAMOL SULFATE) [Concomitant]
  5. WELLBUTRIN SR (BUPROPION) TABLET [Concomitant]
  6. TUMS (CALCIUM CARBONATE) [Concomitant]
  7. VITAMIN D (ERGOCALCIFEROL) [Concomitant]
  8. CRANBERRY EXTRACT [Concomitant]
  9. FLEXERIL (CYCLOBENZAPRINE HYDROCHLORIDE) [Concomitant]
  10. OMEGA-3 FATTY ACIDS (OMEGA-3 FATTY ACIDS) CAPSULE [Concomitant]
  11. GLUCOSE (GLUCOSE) [Concomitant]
  12. BENADRYL ^ACHE^ (AMMONIUM CHLORIDE, DIPHENHYDRAMINE HYDROCHLORIDE, MENTHOL, SODIUM CITRATE) CAPSULE [Concomitant]
  13. FIBER LAX [Concomitant]
  14. FLUTICASONE PROPIONATE (FLUTICASONE PROPIONATE) SPRAY [Concomitant]
  15. GINKGO BILOBA (GINKGO BILOBA) TABLET [Concomitant]
  16. INFUSION THERAPY-NON CHEMO [Concomitant]
  17. IBUPROFEN (IBUPROFEN) [Concomitant]
  18. INULIN (INULIN) [Concomitant]
  19. SEASONALE (ETHINYLESTRADIOL, LEVONORGESTREL) [Concomitant]
  20. ZESTRIL (LISINOPRIL) TABLET [Concomitant]
  21. PRINIVIL (LISINOPRIL) [Concomitant]
  22. RITALIN (METHYLPHENIDATE HYDROCHLORIDE) [Concomitant]
  23. ASMANEX [Concomitant]
  24. MULTIVITAMIN ^LAPPE^ (VITAMINS NOS) [Concomitant]
  25. ZANTAC (RANITIDINE HYDROCHLORIDE) TABLET [Concomitant]
  26. SULFACETAMIDE SODIUM W/SULFUR (SULFACETAMIDE SODIUM, SULFUR) [Concomitant]
  27. SUPPOSITORY BASE [Concomitant]

REACTIONS (5)
  - Heart rate increased [None]
  - Feeling abnormal [None]
  - Dizziness [None]
  - Blood pressure increased [None]
  - Inappropriate schedule of drug administration [None]
